FAERS Safety Report 13765517 (Version 9)
Quarter: 2019Q3

REPORT INFORMATION
  Report Type: Report from Study
  Country: GB (occurrence: GB)
  Receive Date: 20170718
  Receipt Date: 20190718
  Transmission Date: 20191004
  Serious: Yes (Hospitalization, Other)
  Sender: FDA-Public Use
  Company Number: GB-BRISTOL-MYERS SQUIBB COMPANY-BMS-2017-062642

PATIENT
  Age: 43 Year
  Sex: Female

DRUGS (2)
  1. ABATACEPT [Suspect]
     Active Substance: ABATACEPT
     Indication: RHEUMATOID ARTHRITIS
     Dosage: 125 MG, QWK
     Route: 058
     Dates: start: 20160817, end: 20171004
  2. BARICITINIB [Suspect]
     Active Substance: BARICITINIB
     Indication: PRODUCT USED FOR UNKNOWN INDICATION
     Dosage: UNK
     Route: 065

REACTIONS (11)
  - Intervertebral disc operation [Unknown]
  - Headache [Unknown]
  - Lower respiratory tract infection [Recovered/Resolved]
  - Dry eye [Not Recovered/Not Resolved]
  - Radiculopathy [Recovering/Resolving]
  - Rhinitis [Recovering/Resolving]
  - Intervertebral disc protrusion [Recovering/Resolving]
  - Nasal septum deviation [Unknown]
  - Visual impairment [Unknown]
  - Nasal septal operation [Recovering/Resolving]
  - Dry mouth [Not Recovered/Not Resolved]

NARRATIVE: CASE EVENT DATE: 20170201
